FAERS Safety Report 7411232-2 (Version None)
Quarter: 2011Q2

REPORT INFORMATION
  Report Type: 
  Country: None (occurrence: None)
  Receive Date: 20110413
  Receipt Date: 20100409
  Transmission Date: 20111010
  Serious: No
  Sender: FDA-Public Use
  Company Number: US-BRISTOL-MYERS SQUIBB COMPANY-15061526

PATIENT
  Age: 81 Year
  Sex: Female

DRUGS (2)
  1. MAGNESIUM SULFATE [Concomitant]
     Indication: HYPOMAGNESAEMIA
     Dosage: DOSAGE=4GM OVER 4 HOURS
     Route: 042
     Dates: start: 20051128
  2. ERBITUX [Suspect]
     Indication: HEAD AND NECK CANCER
     Route: 042
     Dates: start: 20090915

REACTIONS (1)
  - ONYCHOMADESIS [None]
